FAERS Safety Report 5803518-X (Version None)
Quarter: 2008Q2

REPORT INFORMATION
  Report Type: 
  Country: None (occurrence: None)
  Receive Date: 20080630
  Receipt Date: 20080225
  Transmission Date: 20081010
  Serious: Yes (Other)
  Sender: FDA-Public Use
  Company Number: PHEH2008US02246

PATIENT
  Sex: Female

DRUGS (1)
  1. EXJADE [Suspect]
     Dosage: ORAL
     Route: 048
     Dates: start: 20070101

REACTIONS (2)
  - DIARRHOEA [None]
  - WEIGHT DECREASED [None]
